FAERS Safety Report 9448983 (Version 2)
Quarter: 2014Q1

REPORT INFORMATION
  Report Type: Spontaneous
  Country: JP (occurrence: JP)
  Receive Date: 20130808
  Receipt Date: 20140318
  Transmission Date: 20141002
  Serious: Yes (Other)
  Sender: FDA-Public Use
  Company Number: JP-009507513-1308JPN001863

PATIENT
  Age: 66 Year
  Sex: Female

DRUGS (1)
  1. TIENAM FOR INTRAVENOUS DRIP INFUSION [Suspect]
     Dosage: DAILY DOSAGE UNKNOWN
     Route: 041
     Dates: start: 20130726, end: 20130727

REACTIONS (2)
  - Loss of consciousness [Unknown]
  - Convulsion [Unknown]
